FAERS Safety Report 13662251 (Version 3)
Quarter: 2017Q3

REPORT INFORMATION
  Report Type: Spontaneous
  Country: US (occurrence: US)
  Receive Date: 20170617
  Receipt Date: 20170914
  Transmission Date: 20171127
  Serious: Yes (Other)
  Sender: FDA-Public Use
  Company Number: US-AMGEN-USASP2017088241

PATIENT
  Age: 79 Year
  Sex: Female

DRUGS (8)
  1. SENSIPAR [Suspect]
     Active Substance: CINACALCET HYDROCHLORIDE
     Indication: HYPERPARATHYROIDISM SECONDARY
     Dosage: 30 MG, UNK
     Route: 048
     Dates: start: 201704
  2. BENAZEPRIL [Concomitant]
     Active Substance: BENAZEPRIL HYDROCHLORIDE
     Dosage: 20 MG, UNK
  3. CALCIUM + D3 [Concomitant]
     Active Substance: CALCIUM\CHOLECALCIFEROL
     Dosage: 600 ML, UNK
  4. PRAVASTATIN. [Concomitant]
     Active Substance: PRAVASTATIN
     Dosage: UNK
  5. GABAPENTIN. [Concomitant]
     Active Substance: GABAPENTIN
     Dosage: 300 ML, UNK
  6. DILTIAZEM. [Concomitant]
     Active Substance: DILTIAZEM
     Dosage: 180 UNK, UNK
  7. SENSIPAR [Suspect]
     Active Substance: CINACALCET HYDROCHLORIDE
     Dosage: 15 MG, (1/2 OF 30 MG TABLET)
     Route: 048
  8. BUPROPION. [Concomitant]
     Active Substance: BUPROPION
     Dosage: 150 UNK, UNK

REACTIONS (4)
  - Fall [Unknown]
  - Off label use [Unknown]
  - Dyspnoea [Not Recovered/Not Resolved]
  - Dehydration [Unknown]

NARRATIVE: CASE EVENT DATE: 2017
